FAERS Safety Report 24908888 (Version 1)
Quarter: 2025Q1

REPORT INFORMATION
  Report Type: Spontaneous
  Country: CN (occurrence: CN)
  Receive Date: 20250131
  Receipt Date: 20250131
  Transmission Date: 20250409
  Serious: Yes (Other)
  Sender: Kenvue
  Company Number: CN-KENVUE-20250110188

PATIENT

DRUGS (5)
  1. CHILDRENS MOTRIN [Suspect]
     Active Substance: IBUPROFEN
     Indication: Antipyresis
     Dosage: 3 MILLILITER, TWICE A DAY
     Route: 048
     Dates: start: 20250104, end: 20250104
  2. CHILDRENS MOTRIN [Suspect]
     Active Substance: IBUPROFEN
     Dosage: 3 MILLILITER, TWICE A DAY
     Route: 048
     Dates: start: 20250105, end: 20250105
  3. anti-infection [Concomitant]
     Indication: Nasopharyngitis
     Route: 065
     Dates: start: 20250104
  4. unspecified other treatments [Concomitant]
     Indication: Nasopharyngitis
     Route: 065
     Dates: start: 20250104
  5. UNSPECIFIED INGREDIENT [Concomitant]
     Active Substance: UNSPECIFIED INGREDIENT
     Indication: Nasopharyngitis
     Route: 065
     Dates: start: 20250104

REACTIONS (3)
  - Neutrophil count decreased [Unknown]
  - Off label use [Unknown]
  - White blood cell count decreased [Unknown]

NARRATIVE: CASE EVENT DATE: 20250104
